FAERS Safety Report 4474963-2 (Version None)
Quarter: 2004Q3

REPORT INFORMATION
  Report Type: 
  Country: None (occurrence: None)
  Receive Date: 20040923
  Receipt Date: 20040819
  Transmission Date: 20050211
  Serious: Yes (Hospitalization)
  Sender: FDA-Public Use
  Company Number: USA040669935

PATIENT
  Age: 69 Year
  Sex: Female
  Weight: 39 kg

DRUGS (2)
  1. FORTEO [Suspect]
     Indication: OSTEOPOROSIS
     Dosage: 20 UG/1 DAY
     Dates: start: 20040401
  2. WELLBUTRIN [Concomitant]

REACTIONS (2)
  - INJECTION SITE PAIN [None]
  - PNEUMONIA [None]
